FAERS Safety Report 8985469 (Version 1)
Quarter: 2012Q4

REPORT INFORMATION
  Report Type: 
  Country: US (occurrence: US)
  Receive Date: 20121226
  Receipt Date: 20121226
  Transmission Date: 20130627
  Serious: Yes (Death, Other)
  Sender: FDA-Public Use
  Company Number: US-PFIZER INC-2012324408

PATIENT
  Age: 93 Year
  Sex: Male

DRUGS (1)
  1. REVATIO [Suspect]
     Indication: PRIMARY PULMONARY HYPERTENSION
     Dosage: 20 mg, 3x/day
     Dates: start: 20120815

REACTIONS (1)
  - Cerebrovascular accident [Fatal]
